FAERS Safety Report 9104451 (Version 1)
Quarter: 2013Q1

REPORT INFORMATION
  Report Type: Spontaneous
  Country: US (occurrence: US)
  Receive Date: 20130220
  Receipt Date: 20130220
  Transmission Date: 20140127
  Serious: No
  Sender: FDA-Public Use
  Company Number: US-PFIZER INC-2013061519

PATIENT
  Age: 61 Year
  Sex: Female
  Weight: 89.34 kg

DRUGS (3)
  1. VANCOMYCIN HCL [Suspect]
     Indication: CLOSTRIDIUM DIFFICILE INFECTION
     Dosage: 250 MG/5 ML, 4X/DAY
     Dates: start: 20121215, end: 201302
  2. METRONIDAZOLE [Suspect]
     Indication: CLOSTRIDIUM DIFFICILE INFECTION
     Dosage: 500 MG, 2X/DAY
     Dates: start: 20130124, end: 20130125
  3. LEVAQUIN [Suspect]
     Indication: CLOSTRIDIUM DIFFICILE INFECTION
     Dosage: 500 MG, 1X/DAY
     Dates: start: 20130124, end: 20130204

REACTIONS (1)
  - Drug ineffective [Not Recovered/Not Resolved]
